FAERS Safety Report 8183867-3 (Version None)
Quarter: 2012Q1

REPORT INFORMATION
  Report Type: 
  Country: None (occurrence: None)
  Receive Date: 20120305
  Receipt Date: 20120223
  Transmission Date: 20120608
  Serious: Yes (Hospitalization)
  Sender: FDA-Public Use
  Company Number: JP-ELI_LILLY_AND_COMPANY-JP201111003068

PATIENT
  Age: 82 Year
  Sex: Male

DRUGS (1)
  1. ALIMTA [Suspect]
     Indication: LUNG NEOPLASM MALIGNANT
     Dosage: 800 MG, UNK
     Route: 042
     Dates: start: 20111020, end: 20111020

REACTIONS (1)
  - LUNG DISORDER [None]
